FAERS Safety Report 13433047 (Version 1)
Quarter: 2017Q2

REPORT INFORMATION
  Report Type: Spontaneous
  Country: RU (occurrence: RU)
  Receive Date: 20170412
  Receipt Date: 20170412
  Transmission Date: 20170830
  Serious: Yes (Other)
  Sender: FDA-Public Use
  Company Number: RU-ELI_LILLY_AND_COMPANY-RU201704003759

PATIENT
  Age: 59 Year
  Sex: Male

DRUGS (4)
  1. ERBITUX [Suspect]
     Active Substance: CETUXIMAB
     Indication: TONGUE CARCINOMA STAGE II
     Dosage: 250 MG/M2, WEEKLY (1/W)
     Route: 065
     Dates: start: 201603
  2. 5-FLUOROURACIL                     /00098801/ [Concomitant]
     Active Substance: FLUOROURACIL
     Indication: TONGUE CARCINOMA STAGE II
     Dosage: 600 MG/M2, OTHER
     Route: 065
     Dates: start: 201610
  3. ERBITUX [Suspect]
     Active Substance: CETUXIMAB
     Dosage: 400 MG/M2, WEEKLY (1/W)
     Route: 065
     Dates: start: 201610
  4. ERBITUX [Suspect]
     Active Substance: CETUXIMAB
     Dosage: 250 MG/M2, WEEKLY (1/W)
     Route: 065

REACTIONS (2)
  - Off label use [Unknown]
  - Metastases to lung [Unknown]

NARRATIVE: CASE EVENT DATE: 201608
